FAERS Safety Report 8179745-6 (Version None)
Quarter: 2012Q1

REPORT INFORMATION
  Report Type: 
  Country: None (occurrence: None)
  Receive Date: 20120229
  Receipt Date: 20120224
  Transmission Date: 20120608
  Serious: Yes (Hospitalization, Other)
  Sender: FDA-Public Use
  Company Number: TPA2011A07848

PATIENT
  Age: 76 Year
  Sex: Male
  Weight: 88.4514 kg

DRUGS (9)
  1. NIASPAN [Concomitant]
  2. ACTOS [Suspect]
     Indication: TYPE 2 DIABETES MELLITUS
     Dosage: 15 MG, 1 IN 1 D, PER ORAL 15 MG, 2 IN 1 D, PER ORAL 45 MG, 1 IN 1 D, PER ORAL
     Route: 046
     Dates: start: 20090902, end: 20111003
  3. ACTOS [Suspect]
     Indication: TYPE 2 DIABETES MELLITUS
     Dosage: 15 MG, 1 IN 1 D, PER ORAL 15 MG, 2 IN 1 D, PER ORAL 45 MG, 1 IN 1 D, PER ORAL
     Route: 046
     Dates: start: 20051025, end: 20070313
  4. ACTOS [Suspect]
     Indication: TYPE 2 DIABETES MELLITUS
     Dosage: 15 MG, 1 IN 1 D, PER ORAL 15 MG, 2 IN 1 D, PER ORAL 45 MG, 1 IN 1 D, PER ORAL
     Route: 046
     Dates: start: 20070313, end: 20090902
  5. JANUVIA [Concomitant]
  6. TRILIPIX (CHOLESTEROL- AND TRIGLYCERIDE REDUCERS) [Concomitant]
  7. MULTIVITAMIN (ERGOCALCIFEROL, ASCORBIC ACID, PYRIDOXINE HYDROCHLORIDE, [Concomitant]
  8. LISINOPRIL [Concomitant]
  9. TRICOR [Concomitant]

REACTIONS (22)
  - HYPOTENSION [None]
  - CANDIDIASIS [None]
  - DIARRHOEA [None]
  - CLOSTRIDIUM DIFFICILE COLITIS [None]
  - ABDOMINAL DISCOMFORT [None]
  - RENAL FAILURE [None]
  - ENTEROCOCCAL INFECTION [None]
  - RESPIRATORY FAILURE [None]
  - URINE OUTPUT DECREASED [None]
  - GOUTY ARTHRITIS [None]
  - INTESTINAL ISCHAEMIA [None]
  - ANASTOMOTIC LEAK [None]
  - LOSS OF LIBIDO [None]
  - WHITE BLOOD CELL COUNT INCREASED [None]
  - NOCTURIA [None]
  - ERECTILE DYSFUNCTION [None]
  - TUMOUR NECROSIS [None]
  - PAIN IN EXTREMITY [None]
  - BLADDER TRANSITIONAL CELL CARCINOMA [None]
  - PROSTATE CANCER [None]
  - POST PROCEDURAL COMPLICATION [None]
  - HAEMATURIA [None]
